FAERS Safety Report 6973355-1 (Version None)
Quarter: 2010Q3

REPORT INFORMATION
  Report Type: 
  Country: None (occurrence: None)
  Receive Date: 20100907
  Receipt Date: 20100827
  Transmission Date: 20110219
  Serious: Yes (Other)
  Sender: FDA-Public Use
  Company Number: TPA2010A04710

PATIENT
  Age: 69 Year
  Sex: Female

DRUGS (1)
  1. ACTOS [Suspect]

REACTIONS (4)
  - FALL [None]
  - HAEMODIALYSIS [None]
  - PELVIC FRACTURE [None]
  - RENAL FAILURE [None]
